FAERS Safety Report 6501522-X (Version None)
Quarter: 2009Q4

REPORT INFORMATION
  Report Type: 
  Country: None (occurrence: None)
  Receive Date: 20091216
  Receipt Date: 20091210
  Transmission Date: 20100525
  Serious: Yes (Life-Threatening, Hospitalization, Other)
  Sender: FDA-Public Use
  Company Number: A0835167A

PATIENT
  Age: 64 Year
  Sex: Female

DRUGS (8)
  1. AUGMENTIN [Suspect]
     Indication: COUGH
     Route: 048
     Dates: start: 20090901, end: 20090101
  2. ACYCLOVIR [Suspect]
     Indication: HERPES ZOSTER
     Dosage: 400MG THREE TIMES PER DAY
     Route: 065
  3. KAPIDEX [Suspect]
     Dosage: 60MG PER DAY
     Route: 048
     Dates: start: 20091007, end: 20091001
  4. CEFUROXIME [Concomitant]
  5. DIPHENOXYLATE [Concomitant]
  6. HYDROXYZINE [Concomitant]
  7. SIMVASTATIN [Concomitant]
     Indication: BLOOD CHOLESTEROL INCREASED
  8. THYROID TAB [Concomitant]
     Dosage: 120MG PER DAY

REACTIONS (35)
  - ABASIA [None]
  - ACTIVATED PARTIAL THROMBOPLASTIN TIME PROLONGED [None]
  - ACUTE RESPIRATORY DISTRESS SYNDROME [None]
  - ANAEMIA [None]
  - BACTERAEMIA [None]
  - BLOOD CULTURE POSITIVE [None]
  - BLOOD FIBRINOGEN INCREASED [None]
  - CATHETER SITE HAEMORRHAGE [None]
  - CULTURE URINE POSITIVE [None]
  - DEHYDRATION [None]
  - DERMATITIS EXFOLIATIVE [None]
  - DISSEMINATED INTRAVASCULAR COAGULATION [None]
  - DYSPNOEA [None]
  - EATING DISORDER [None]
  - GASTROINTESTINAL TUBE INSERTION [None]
  - HYPOTENSION [None]
  - IMMUNE SYSTEM DISORDER [None]
  - LUNG INFILTRATION [None]
  - MUCOSAL EROSION [None]
  - NEUTROPENIA [None]
  - NIKOLSKY'S SIGN [None]
  - ORAL CANDIDIASIS [None]
  - PNEUMONIA [None]
  - PROTHROMBIN TIME PROLONGED [None]
  - PURPURA [None]
  - PYREXIA [None]
  - RENAL FAILURE ACUTE [None]
  - RESPIRATORY FAILURE [None]
  - SCAB [None]
  - SEPTIC SHOCK [None]
  - SKIN EXFOLIATION [None]
  - STEVENS-JOHNSON SYNDROME [None]
  - THROMBOCYTOPENIA [None]
  - TONGUE ERUPTION [None]
  - TOXIC EPIDERMAL NECROLYSIS [None]
